FAERS Safety Report 24097675 (Version 1)
Quarter: 2024Q3

REPORT INFORMATION
  Report Type: Spontaneous
  Country: US (occurrence: US)
  Receive Date: 20240716
  Receipt Date: 20240716
  Transmission Date: 20241016
  Serious: No
  Sender: PERRIGO
  Company Number: US-PERRIGO-24US002672

PATIENT

DRUGS (1)
  1. IBUPROFEN\PHENYLEPHRINE HYDROCHLORIDE [Suspect]
     Active Substance: IBUPROFEN\PHENYLEPHRINE HYDROCHLORIDE
     Indication: Product used for unknown indication
     Dosage: UNKNOWN, UNKNOWN
     Route: 048

REACTIONS (1)
  - Therapeutic product effect decreased [Unknown]
